FAERS Safety Report 11127168 (Version 1)
Quarter: 2015Q2

REPORT INFORMATION
  Report Type: Spontaneous
  Country: GB (occurrence: GB)
  Receive Date: 20150521
  Receipt Date: 20150521
  Transmission Date: 20150821
  Serious: Yes (Hospitalization)
  Sender: FDA-Public Use
  Company Number: GB-ACCORD-030795

PATIENT
  Sex: Female

DRUGS (6)
  1. ANASTROZOLE. [Concomitant]
     Active Substance: ANASTROZOLE
  2. ASPIRIN. [Concomitant]
     Active Substance: ASPIRIN
  3. SENNA [Concomitant]
     Active Substance: SENNA LEAF\SENNOSIDES\SENNOSIDES A AND B
  4. RISEDRONATE SODIUM/RISEDRONIC ACID [Concomitant]
  5. DOCUSATE/DOCUSATE CALCIUM/DOCUSATE POTASSIUM/DOCUSATE SODIUM [Concomitant]
  6. AMITRIPTYLINE [Suspect]
     Active Substance: AMITRIPTYLINE
     Indication: INSOMNIA
     Route: 048

REACTIONS (2)
  - Off label use [Unknown]
  - Hyponatraemia [Recovered/Resolved]
